FAERS Safety Report 10671490 (Version 1)
Quarter: 2014Q4

REPORT INFORMATION
  Report Type: Spontaneous
  Country: US (occurrence: None)
  Receive Date: 20141219
  Receipt Date: 20141219
  Transmission Date: 20150529
  Serious: Yes (Other)
  Sender: FDA-Public Use
  Company Number: ADR-2014-02362

PATIENT
  Age: 47 Year
  Sex: Male

DRUGS (2)
  1. BACLOFEN INTRATHECAL [Suspect]
     Active Substance: BACLOFEN
     Indication: MUSCLE SPASTICITY
  2. DILAUDID [Suspect]
     Active Substance: HYDROMORPHONE HYDROCHLORIDE

REACTIONS (10)
  - Muscle spasms [None]
  - Weight decreased [None]
  - Device related infection [None]
  - Sepsis [None]
  - Pain [None]
  - Infected skin ulcer [None]
  - Tremor [None]
  - Device dislocation [None]
  - Lung infection [None]
  - Decubitus ulcer [None]

NARRATIVE: CASE EVENT DATE: 20090622
